FAERS Safety Report 20611984 (Version 1)
Quarter: 2022Q1

REPORT INFORMATION
  Report Type: Spontaneous
  Country: FR (occurrence: None)
  Receive Date: 20220318
  Receipt Date: 20220318
  Transmission Date: 20220423
  Serious: Yes (Death)
  Sender: FDA-Public Use
  Company Number: 2022A112982

PATIENT
  Age: 59 Year
  Sex: Female
  Weight: 94 kg

DRUGS (3)
  1. FASLODEX [Suspect]
     Active Substance: FULVESTRANT
     Indication: Invasive ductal breast carcinoma
     Dosage: 500.0MG ONCE/SINGLE ADMINISTRATION
     Route: 030
     Dates: start: 20211208
  2. IBRANCE [Suspect]
     Active Substance: PALBOCICLIB
     Indication: Invasive ductal breast carcinoma
     Dosage: 21 DAYS OUT OF 28 DAYS
     Route: 048
     Dates: start: 20211208
  3. SPIKEVAX [Concomitant]
     Active Substance: ELASOMERAN
     Indication: COVID-19 immunisation
     Dosage: R11.0DF ONCE/SINGLE ADMINISTRATION
     Route: 030
     Dates: start: 20220118, end: 20220118

REACTIONS (3)
  - Portal vein thrombosis [Fatal]
  - Mesenteric vein thrombosis [Fatal]
  - Splenic vein thrombosis [Fatal]

NARRATIVE: CASE EVENT DATE: 20220228
